FAERS Safety Report 5160805-9 (Version None)
Quarter: 2006Q4

REPORT INFORMATION
  Report Type: 
  Country: None (occurrence: None)
  Receive Date: 20061121
  Receipt Date: 20061108
  Transmission Date: 20070319
  Serious: Yes (Life-Threatening, Hospitalization, Other)
  Sender: FDA-Public Use
  Company Number: 210575

PATIENT
  Age: 78 Year
  Sex: Female
  Weight: 65 kg

DRUGS (7)
  1. RITUXIMAB(RITUXIMAB)CONC FOR SOLUTION FOR INFUSION [Suspect]
     Indication: CHRONIC LYMPHOCYTIC LEUKAEMIA
     Dosage: 500 MG/M2, Q28D, INTRAVENOUS
     Route: 042
     Dates: start: 20040127, end: 20040615
  2. FLUDARABINE PHOSPHATE [Suspect]
     Indication: CHRONIC LYMPHOCYTIC LEUKAEMIA
     Dosage: 25 MG/M2, Q2BD, INTRAVENOUS
     Route: 042
     Dates: start: 20040128, end: 20040617
  3. CYCLOPHOSPHAMIDE [Suspect]
     Indication: CHRONIC LYMPHOCYTIC LEUKAEMIA
     Dosage: 250 MG/M2, Q2BD, INTRAVENOUS
     Route: 042
     Dates: start: 20040128, end: 20040617
  4. DITROPAN (OXYBUTININ CHLORIDE) [Concomitant]
  5. ACETAMINOPHEN [Concomitant]
  6. BACTRIM [Concomitant]
  7. FLUCONAZOLE [Concomitant]

REACTIONS (1)
  - COLON CANCER [None]
